FAERS Safety Report 11466365 (Version 1)
Quarter: 2015Q3

REPORT INFORMATION
  Report Type: Spontaneous
  Country: US (occurrence: US)
  Receive Date: 20150907
  Receipt Date: 20150907
  Transmission Date: 20151125
  Serious: No
  Sender: FDA-Public Use
  Company Number: US-ASTRAZENECA-2015SE82666

PATIENT
  Sex: Female
  Weight: 60.8 kg

DRUGS (4)
  1. VENTOLIN [Concomitant]
     Active Substance: ALBUTEROL SULFATE
     Indication: ASTHMA
     Route: 055
  2. PULMICORT FLEXHALER [Suspect]
     Active Substance: BUDESONIDE
     Indication: ASTHMA
     Dosage: 180 MCG EVERY 12 HOURS,1 PUFF AT 10 AM AND 1 PUFF AT 10 PM
     Route: 055
     Dates: start: 20150817
  3. PULMICORT FLEXHALER [Suspect]
     Active Substance: BUDESONIDE
     Indication: ASTHMA
     Dosage: 180 MCG EVERY 12 HOURS,1 PUFF AT 10 AM AND 1 PUFF AT 10 PM
     Route: 055
  4. OXYGEN. [Concomitant]
     Active Substance: OXYGEN

REACTIONS (7)
  - Activities of daily living impaired [Unknown]
  - Productive cough [Unknown]
  - Insomnia [Unknown]
  - Wheezing [Unknown]
  - Feeling abnormal [Unknown]
  - Pain in extremity [Unknown]
  - Cough [Unknown]
